FAERS Safety Report 10176077 (Version 1)
Quarter: 2014Q2

REPORT INFORMATION
  Report Type: Spontaneous
  Country: US (occurrence: None)
  Receive Date: 20140514
  Receipt Date: 20140514
  Transmission Date: 20141212
  Serious: Yes (Death)
  Sender: FDA-Public Use
  Company Number: FK201401739

PATIENT
  Age: 7 Year
  Sex: Male

DRUGS (4)
  1. CEFTRIAXON [Suspect]
     Indication: PYREXIA
  2. PARACETAMOL [Suspect]
     Indication: PYREXIA
     Dosage: 6 IN 1 D
  3. IBUPROFEN [Suspect]
     Indication: PYREXIA
  4. FENRETINIDE [Suspect]
     Indication: NEOPLASM MALIGNANT
     Dosage: FOR 120 HRS

REACTIONS (5)
  - Drug interaction [None]
  - Pyrexia [None]
  - Blood lactate dehydrogenase increased [None]
  - Aspartate aminotransferase increased [None]
  - Alanine aminotransferase increased [None]
